FAERS Safety Report 8981387 (Version 2)
Quarter: 2013Q1

REPORT INFORMATION
  Report Type: Spontaneous
  Country: US (occurrence: US)
  Receive Date: 20121221
  Receipt Date: 20130207
  Transmission Date: 20140127
  Serious: No
  Sender: FDA-Public Use
  Company Number: US-PFIZER INC-2012323606

PATIENT
  Age: 8 Year
  Sex: Female
  Weight: 27.21 kg

DRUGS (2)
  1. CHILDRENS ADVIL [Suspect]
     Indication: PYREXIA
     Dosage: TWO AND HALF TEASPOONS, 3X/DAY
     Route: 048
     Dates: start: 20121218, end: 20121218
  2. CHILDRENS ADVIL [Suspect]
     Indication: PAIN

REACTIONS (1)
  - Drug ineffective [Not Recovered/Not Resolved]
